FAERS Safety Report 6415677-9 (Version None)
Quarter: 2009Q4

REPORT INFORMATION
  Report Type: 
  Country: None (occurrence: None)
  Receive Date: 20091022
  Receipt Date: 20091012
  Transmission Date: 20100525
  Serious: Yes (Hospitalization)
  Sender: FDA-Public Use
  Company Number: 2009AC000111

PATIENT
  Age: 78 Year
  Sex: Female

DRUGS (52)
  1. DIGOXIN [Suspect]
     Dosage: 0.25 MG; QD; PO
     Route: 048
  2. BIAXIN [Concomitant]
  3. CLARITHROMYCIN [Concomitant]
  4. RIFAMPIN [Concomitant]
  5. MUPIROCIN [Concomitant]
  6. METOPROLOL [Concomitant]
  7. FLUCONAZOLE [Concomitant]
  8. LORAZEPAM [Concomitant]
  9. FEXOFENADINE [Concomitant]
  10. CEPHALEXIN [Concomitant]
  11. METHYLPREDNISOLONE 4MG TAB [Concomitant]
  12. DOXYCYCLINE [Concomitant]
  13. QUININE SULFATE [Concomitant]
  14. LUNESTA [Concomitant]
  15. GLYCOLAX [Concomitant]
  16. SULFAMETHOXAZOLE [Concomitant]
  17. MUPIROCIN [Concomitant]
  18. DIAZEPAM [Concomitant]
  19. BIDIL [Concomitant]
  20. NITROFURANTOIN [Concomitant]
  21. AMRIX [Concomitant]
  22. HYDROCODONE [Concomitant]
  23. LEVAQUIN [Concomitant]
  24. PYRELLE [Concomitant]
  25. COZAAR [Concomitant]
  26. OXYCODONE [Concomitant]
  27. LYRICA [Concomitant]
  28. AMIODARONE [Concomitant]
  29. COSOPT [Concomitant]
  30. ESTRACE [Concomitant]
  31. BENZONATATE [Concomitant]
  32. FUROSEMIDE [Concomitant]
  33. LORAZEPAM [Concomitant]
  34. SERTRALINE HCL [Concomitant]
  35. REQUIP [Concomitant]
  36. PROTONIX [Concomitant]
  37. ZOCOR [Concomitant]
  38. MECLIZINE [Concomitant]
  39. VITAMIN D [Concomitant]
  40. ALPRAZOLAM [Concomitant]
  41. ZYRTEC [Concomitant]
  42. DIFLUCAN [Concomitant]
  43. NORTRIPTYLINE [Concomitant]
  44. FERROUS SULFATE TAB [Concomitant]
  45. METRONIDAZOLE [Concomitant]
  46. CIPRO [Concomitant]
  47. PHENAZOPYRIDINE HCL TAB [Concomitant]
  48. TRAMADOL HCL [Concomitant]
  49. ZITHROMAX [Concomitant]
  50. HYDROCHLOROTHIAZIDE [Concomitant]
  51. COUMADIN [Concomitant]
  52. AMIODARONE [Concomitant]

REACTIONS (13)
  - ANGINA PECTORIS [None]
  - ATRIAL FIBRILLATION [None]
  - ATRIOVENTRICULAR BLOCK COMPLETE [None]
  - CARDIAC FAILURE CONGESTIVE [None]
  - CARDIOMYOPATHY [None]
  - CHEST DISCOMFORT [None]
  - CORONARY ARTERY DISEASE [None]
  - DYSPNOEA [None]
  - GASTROOESOPHAGEAL REFLUX DISEASE [None]
  - HYPERHIDROSIS [None]
  - HYPERTENSION [None]
  - PRESYNCOPE [None]
  - THYROID CYST [None]
